FAERS Safety Report 19955397 (Version 2)
Quarter: 2021Q4

REPORT INFORMATION
  Report Type: Report from Study
  Country: AU (occurrence: None)
  Receive Date: 20211014
  Receipt Date: 20211111
  Transmission Date: 20220303
  Serious: Yes (Death, Other)
  Sender: FDA-Public Use
  Company Number: AU-MERCK HEALTHCARE KGAA-9262999

PATIENT
  Age: 73 Year
  Sex: Female

DRUGS (1)
  1. MAVENCLAD [Suspect]
     Active Substance: CLADRIBINE
     Indication: Multiple sclerosis
     Dosage: YEAR ONE WEEK ONE THERAPY
     Dates: start: 20210806, end: 20210810

REACTIONS (4)
  - Central nervous system vasculitis [Fatal]
  - Hemiparesis [Fatal]
  - Gait disturbance [Fatal]
  - General physical health deterioration [Unknown]

NARRATIVE: CASE EVENT DATE: 20210101
